FAERS Safety Report 23033693 (Version 1)
Quarter: 2023Q4

REPORT INFORMATION
  Report Type: Spontaneous
  Country: GB (occurrence: GB)
  Receive Date: 20231005
  Receipt Date: 20231005
  Transmission Date: 20240109
  Serious: Yes (Hospitalization, Other)
  Sender: FDA-Public Use
  Company Number: None

PATIENT
  Age: 61 Year
  Sex: Male

DRUGS (8)
  1. OLANZAPINE [Suspect]
     Active Substance: OLANZAPINE
     Indication: Product used for unknown indication
     Dosage: 20 MILLIGRAM DAILY; UNIT DOSE: 10MG, FREQUENCY: TWICE DAILY
     Route: 065
  2. OLANZAPINE [Suspect]
     Active Substance: OLANZAPINE
     Dosage: 10 MILLIGRAM DAILY; UNIT DOSE: 5MG, FREQUENCY: TWICE DAILY
     Route: 065
  3. ALBUTEROL [Concomitant]
     Active Substance: ALBUTEROL
     Indication: Product used for unknown indication
     Dosage: PRN, UNIT DOSE: 200MCG
     Route: 055
  4. GLYCOPYRRONIUM [Concomitant]
     Active Substance: GLYCOPYRRONIUM
     Indication: Product used for unknown indication
     Dosage: 44 MILLIGRAM DAILY; MORNING, UNIT DOSE: 44MG
     Route: 055
  5. ATORVASTATIN [Concomitant]
     Active Substance: ATORVASTATIN
     Indication: Product used for unknown indication
     Dosage: 1 DOSAGE FORMS DAILY; NIGHT, UNIT DOSE: 1DF
  6. VALPROATE SODIUM [Concomitant]
     Active Substance: VALPROATE SODIUM
     Indication: Product used for unknown indication
     Dosage: 2000 MILLIGRAM DAILY; UNIT DOSE: 1000MG, FREQUENCY: TWICE DAILY
  7. HALOPERIDOL [Concomitant]
     Active Substance: HALOPERIDOL
     Indication: Product used for unknown indication
     Dosage: 20 MILLIGRAM DAILY; 10MG/5ML, FREQUENCY: TWICE DAILY (REPLACING CLOZAPINE WHICH WAS ORIGINALLY HELD)
     Route: 048
  8. LEVETIRACETAM [Concomitant]
     Active Substance: LEVETIRACETAM
     Indication: Seizure
     Dosage: 3 GRAM DAILY; (STARTED DUE TO SEIZURE), UNIT DOSE: 1.5G,  FREQUENCY: TWICE DAILY

REACTIONS (2)
  - Generalised tonic-clonic seizure [Recovered/Resolved]
  - Ileus [Unknown]
